FAERS Safety Report 19152045 (Version 3)
Quarter: 2021Q3

REPORT INFORMATION
  Report Type: Report from Study
  Country: JP (occurrence: JP)
  Receive Date: 20210419
  Receipt Date: 20210716
  Transmission Date: 20211014
  Serious: Yes (Hospitalization, Other)
  Sender: FDA-Public Use
  Company Number: NVSJ2021JP005501

PATIENT
  Age: 66 Year
  Sex: Female

DRUGS (13)
  1. REVOLADE TAB [Suspect]
     Active Substance: ELTROMBOPAG OLAMINE
     Dosage: 50 MG
     Route: 048
     Dates: start: 20191003, end: 20191030
  2. RED BLOOD CELLS, CONCENTRATED [Concomitant]
     Active Substance: HUMAN RED BLOOD CELL
     Indication: PRODUCT USED FOR UNKNOWN INDICATION
     Dosage: 280 ML
     Route: 065
     Dates: start: 20190808, end: 20190904
  3. RED BLOOD CELLS, CONCENTRATED [Concomitant]
     Active Substance: HUMAN RED BLOOD CELL
     Dosage: 280 ML
     Route: 065
     Dates: start: 20190905, end: 20191002
  4. RED BLOOD CELLS, CONCENTRATED [Concomitant]
     Active Substance: HUMAN RED BLOOD CELL
     Dosage: 560 ML
     Route: 065
     Dates: start: 20191128, end: 20191225
  5. RED BLOOD CELLS, CONCENTRATED [Concomitant]
     Active Substance: HUMAN RED BLOOD CELL
     Dosage: 560 ML
     Route: 065
     Dates: start: 20191226, end: 20200122
  6. REVOLADE TAB [Suspect]
     Active Substance: ELTROMBOPAG OLAMINE
     Indication: APLASTIC ANAEMIA
     Dosage: 25 MG
     Route: 048
     Dates: start: 20190905, end: 20191002
  7. CICLOSPORIN [Concomitant]
     Active Substance: CYCLOSPORINE
     Indication: APLASTIC ANAEMIA
     Dosage: 200 MG
     Route: 048
     Dates: start: 20181219, end: 20200318
  8. RED BLOOD CELLS, CONCENTRATED [Concomitant]
     Active Substance: HUMAN RED BLOOD CELL
     Dosage: 840 ML
     Route: 065
     Dates: start: 20200220, end: 20200320
  9. REVOLADE TAB [Suspect]
     Active Substance: ELTROMBOPAG OLAMINE
     Dosage: 100 MG
     Route: 048
     Dates: start: 20191031, end: 20200318
  10. PREDNISOLONE. [Concomitant]
     Active Substance: PREDNISOLONE
     Indication: APLASTIC ANAEMIA
     Dosage: 20 MG
     Route: 048
     Dates: start: 20190624, end: 20200318
  11. RED BLOOD CELLS, CONCENTRATED [Concomitant]
     Active Substance: HUMAN RED BLOOD CELL
     Dosage: 280 ML
     Route: 065
     Dates: start: 20191003, end: 20191030
  12. RED BLOOD CELLS, CONCENTRATED [Concomitant]
     Active Substance: HUMAN RED BLOOD CELL
     Dosage: 280 ML
     Route: 065
     Dates: start: 20191031, end: 20191127
  13. RED BLOOD CELLS, CONCENTRATED [Concomitant]
     Active Substance: HUMAN RED BLOOD CELL
     Dosage: 280 ML
     Route: 065
     Dates: start: 20200123, end: 20200219

REACTIONS (3)
  - Thrombocytopenia [Unknown]
  - Acute myeloid leukaemia [Not Recovered/Not Resolved]
  - Granulocytopenia [Unknown]

NARRATIVE: CASE EVENT DATE: 20200305
